FAERS Safety Report 7247500-7 (Version None)
Quarter: 2011Q1

REPORT INFORMATION
  Report Type: 
  Country: None (occurrence: None)
  Receive Date: 20110127
  Receipt Date: 20110121
  Transmission Date: 20110831
  Serious: Yes (Life-Threatening, Other)
  Sender: FDA-Public Use
  Company Number: FR-ROCHE-742801

PATIENT
  Age: 42 Year
  Sex: Female
  Weight: 94 kg

DRUGS (7)
  1. ROACTEMRA [Suspect]
     Dosage: FORM INFUSION
     Route: 042
     Dates: start: 20100728
  2. ROACTEMRA [Suspect]
     Dosage: FORM INFUSION
     Route: 042
     Dates: start: 20100924
  3. METOJECT [Concomitant]
     Indication: RHEUMATOID ARTHRITIS
     Route: 058
     Dates: start: 20071201, end: 20101010
  4. ROACTEMRA [Suspect]
     Dosage: FORM INFUSION
     Route: 042
     Dates: start: 20100826
  5. ROACTEMRA [Suspect]
     Dosage: FORM INFUSION
     Route: 042
     Dates: start: 20100624
  6. CORTANCYL [Concomitant]
     Indication: RHEUMATOID ARTHRITIS
     Route: 048
  7. LEVOTHYROX [Concomitant]
     Indication: HYPOTHYROIDISM
     Route: 048
     Dates: start: 20021201

REACTIONS (3)
  - BREAST CANCER METASTATIC [None]
  - HEPATOCELLULAR INJURY [None]
  - FURUNCLE [None]
